FAERS Safety Report 20757407 (Version 3)
Quarter: 2022Q2

REPORT INFORMATION
  Report Type: Spontaneous
  Country: CA (occurrence: CA)
  Receive Date: 20220427
  Receipt Date: 20220602
  Transmission Date: 20220721
  Serious: Yes (Other)
  Sender: FDA-Public Use
  Company Number: CA-PFIZER INC-202200307795

PATIENT
  Age: 52 Year
  Sex: Female
  Weight: 75.2 kg

DRUGS (7)
  1. TRAZIMERA [Suspect]
     Active Substance: TRASTUZUMAB-QYYP
     Indication: Breast cancer stage IV
     Dosage: 11.2 MG (6 MG/KG), EVERY 21 DAYS
     Route: 042
     Dates: start: 20220301
  2. TRAZIMERA [Suspect]
     Active Substance: TRASTUZUMAB-QYYP
     Dosage: 400 MG EVERY 21 DAYS
     Route: 042
     Dates: start: 20220301
  3. TRAZIMERA [Suspect]
     Active Substance: TRASTUZUMAB-QYYP
     Dosage: 6 MG/KG, FREQUENCY:Q 21 DAYS
     Route: 042
  4. TRAZIMERA [Suspect]
     Active Substance: TRASTUZUMAB-QYYP
     Dosage: 440 MG (6MG/KG) EVERY 3 WEEKS
     Route: 042
     Dates: start: 20220329, end: 20220329
  5. TRAZIMERA [Suspect]
     Active Substance: TRASTUZUMAB-QYYP
     Dosage: 10 MG  (6MG/KG) EVERY 3 WEEKS
     Route: 042
     Dates: start: 20220329, end: 20220329
  6. TRAZIMERA [Suspect]
     Active Substance: TRASTUZUMAB-QYYP
     Dosage: 440MG (6MG/KG) Q 3 WEEKS
     Route: 042
     Dates: start: 20220426
  7. TRAZIMERA [Suspect]
     Active Substance: TRASTUZUMAB-QYYP
     Dosage: 10MG (6MG/KG) Q 3 WEEKS
     Route: 042
     Dates: start: 20220426

REACTIONS (8)
  - Haematochezia [Unknown]
  - Intestinal obstruction [Unknown]
  - Blood pressure increased [Unknown]
  - Diarrhoea [Unknown]
  - Weight decreased [Unknown]
  - Frequent bowel movements [Unknown]
  - Product dose omission issue [Unknown]
  - Off label use [Unknown]

NARRATIVE: CASE EVENT DATE: 20220313
